FAERS Safety Report 20279273 (Version 2)
Quarter: 2022Q1

REPORT INFORMATION
  Report Type: Spontaneous
  Country: US (occurrence: US)
  Receive Date: 20220103
  Receipt Date: 20220201
  Transmission Date: 20220423
  Serious: Yes (Hospitalization)
  Sender: FDA-Public Use
  Company Number: US-BRISTOL-MYERS SQUIBB COMPANY-BMS-2021-140216

PATIENT
  Age: 51 Year
  Sex: Male
  Weight: 99.79 kg

DRUGS (8)
  1. KENALOG-40 [Suspect]
     Active Substance: TRIAMCINOLONE ACETONIDE
     Indication: Intervertebral disc disorder
     Dosage: 40 MILLIGRAM
     Route: 008
     Dates: start: 20211019
  2. PREDNISONE [Suspect]
     Active Substance: PREDNISONE
     Indication: Product used for unknown indication
     Dosage: 10 MILLIGRAM (DAY 1 ? 6 TAB, D-2- 5 TAB, D-3-4 TAB, D-4-3 TAB, D-5-2 TAB, D-6-1 TAB )
     Route: 048
     Dates: start: 20210923
  3. PREDNISONE [Suspect]
     Active Substance: PREDNISONE
     Dosage: 1 WEEK
     Route: 048
     Dates: start: 20211005
  4. PREDNISONE [Suspect]
     Active Substance: PREDNISONE
     Dosage: 1 WEEK
     Route: 048
     Dates: start: 20211026
  5. IOHEXOL [Concomitant]
     Active Substance: IOHEXOL
     Indication: Product used for unknown indication
     Dosage: 50 MILLILITER
     Route: 065
  6. IODINE [Concomitant]
     Active Substance: IODINE
     Indication: Product used for unknown indication
     Dosage: 240 MILLIGRAM
     Route: 065
  7. LIDOCAINE [Concomitant]
     Active Substance: LIDOCAINE
     Indication: Product used for unknown indication
     Dosage: 30 MILLILITER
     Route: 065
  8. XYLOCAINE [Concomitant]
     Active Substance: LIDOCAINE HYDROCHLORIDE
     Indication: Product used for unknown indication
     Dosage: 4ML OF 1%
     Route: 065

REACTIONS (7)
  - Hyperhidrosis [Recovered/Resolved]
  - Skin hypopigmentation [Unknown]
  - Hypoaesthesia [Unknown]
  - Intentional product use issue [Unknown]
  - White blood cell count increased [Unknown]
  - Infection [Unknown]
  - Nerve injury [Unknown]

NARRATIVE: CASE EVENT DATE: 20211004
